FAERS Safety Report 5143484-6 (Version None)
Quarter: 2006Q4

REPORT INFORMATION
  Report Type: 
  Country: None (occurrence: None)
  Receive Date: 20061103
  Receipt Date: 20060825
  Transmission Date: 20070319
  Serious: Yes (Other)
  Sender: FDA-Public Use
  Company Number: JP-JPN-A200603323

PATIENT
  Age: 52 Year
  Sex: Female
  Weight: 48 kg

DRUGS (8)
  1. ZANTAC [Suspect]
     Indication: PREMEDICATION
     Dosage: 50MG PER DAY
     Route: 042
     Dates: start: 20060824, end: 20060824
  2. TAXOL [Concomitant]
     Route: 042
  3. DECADRON [Concomitant]
     Indication: PREMEDICATION
     Dosage: 16MG PER DAY
     Route: 042
     Dates: start: 20060824, end: 20060824
  4. CARBOPLATIN [Concomitant]
     Indication: CHEMOTHERAPY
  5. ISOTONIC SODIUM CHLORIDE [Concomitant]
     Indication: PREMEDICATION
     Dates: start: 20060824
  6. GLYCYRRHIZIN [Concomitant]
     Dates: start: 20060824
  7. GLYCINE HCL [Concomitant]
     Dates: start: 20060824
  8. CYSTEINE [Concomitant]
     Dates: start: 20060824

REACTIONS (4)
  - FEELING ABNORMAL [None]
  - GENERALISED ERYTHEMA [None]
  - OXYGEN SATURATION DECREASED [None]
  - SHOCK [None]
